FAERS Safety Report 7014724-3 (Version None)
Quarter: 2010Q3

REPORT INFORMATION
  Report Type: 
  Country: None (occurrence: None)
  Receive Date: 20100927
  Receipt Date: 20100915
  Transmission Date: 20110219
  Serious: Yes (Other)
  Sender: FDA-Public Use
  Company Number: PHHY2010BR61683

PATIENT
  Sex: Female

DRUGS (1)
  1. DIOVAN AMLO [Suspect]

REACTIONS (2)
  - ANURIA [None]
  - SWELLING [None]
